FAERS Safety Report 18276611 (Version 1)
Quarter: 2020Q3

REPORT INFORMATION
  Report Type: Spontaneous
  Country: US (occurrence: US)
  Receive Date: 20200917
  Receipt Date: 20200917
  Transmission Date: 20201103
  Serious: No
  Sender: FDA-Public Use
  Company Number: US-SA-2020SA248422

PATIENT

DRUGS (2)
  1. DUPIXENT [Suspect]
     Active Substance: DUPILUMAB
     Dosage: OTHER
     Route: 058
     Dates: start: 202008, end: 2020
  2. DUPIXENT [Suspect]
     Active Substance: DUPILUMAB
     Dosage: OTHER
     Route: 058
     Dates: start: 2020

REACTIONS (2)
  - Product dose omission issue [Unknown]
  - Rash [Unknown]

NARRATIVE: CASE EVENT DATE: 2020
